FAERS Safety Report 10207369 (Version 1)
Quarter: 2014Q2

REPORT INFORMATION
  Report Type: Spontaneous
  Country: US (occurrence: None)
  Receive Date: 20140529
  Receipt Date: 20140529
  Transmission Date: 20141212
  Serious: Yes (Disabling)
  Sender: FDA-Public Use
  Company Number: None

PATIENT
  Age: 32 Year
  Sex: Female
  Weight: 60.33 kg

DRUGS (1)
  1. HYDROCHLOROTHIAZIDE [Suspect]
     Indication: HYPERTENSION
     Dosage: 1 PILL ONCE DAILY TAKEN BY MOUTH
     Route: 048
     Dates: start: 20130822, end: 20140115

REACTIONS (11)
  - Anxiety [None]
  - Panic attack [None]
  - Contusion [None]
  - Dysphagia [None]
  - Rash [None]
  - Hepatic enzyme increased [None]
  - Eating disorder [None]
  - Decreased appetite [None]
  - Depression [None]
  - Mood swings [None]
  - Exposure during pregnancy [None]
